FAERS Safety Report 7052347-0 (Version None)
Quarter: 2010Q4

REPORT INFORMATION
  Report Type: 
  Country: None (occurrence: None)
  Receive Date: 20101014
  Receipt Date: 20100930
  Transmission Date: 20110411
  Serious: Yes (Hospitalization)
  Sender: FDA-Public Use
  Company Number: 019659

PATIENT
  Sex: Female
  Weight: 51 kg

DRUGS (7)
  1. CIMZIA [Suspect]
     Indication: CROHN'S DISEASE
     Dosage: 400 MG 1X/4 WEEKS SUBCUTANEOUS
     Route: 058
     Dates: start: 20100501
  2. PENTASA [Concomitant]
  3. POTASSIUM CHLORIDE [Concomitant]
  4. LEVOTHYROXINE [Concomitant]
  5. NEURTOTIN /00949202/ [Concomitant]
  6. VITAMIN TAB [Concomitant]
  7. ELAVIL [Concomitant]

REACTIONS (5)
  - BLOOD POTASSIUM DECREASED [None]
  - CONDITION AGGRAVATED [None]
  - CROHN'S DISEASE [None]
  - INJECTION SITE HAEMATOMA [None]
  - INJECTION SITE NODULE [None]
